FAERS Safety Report 8190101-7 (Version None)
Quarter: 2012Q1

REPORT INFORMATION
  Report Type: 
  Country: None (occurrence: None)
  Receive Date: 20120307
  Receipt Date: 20120307
  Transmission Date: 20120608
  Serious: Yes (Other)
  Sender: FDA-Public Use
  Company Number: None

PATIENT
  Age: 90 Year
  Sex: Female
  Weight: 61.234 kg

DRUGS (2)
  1. VIGAMOX [Concomitant]
     Indication: HERPES ZOSTER
     Dosage: 1 DROP
     Route: 047
     Dates: start: 20120217, end: 20120219
  2. ACYCLOVIR [Suspect]
     Indication: HERPES ZOSTER
     Dosage: 1 TALBET
     Route: 048
     Dates: start: 20120217, end: 20120219

REACTIONS (19)
  - INCOHERENT [None]
  - DYSPHAGIA [None]
  - MOOD ALTERED [None]
  - SOMNOLENCE [None]
  - SPEECH DISORDER [None]
  - PHARYNGEAL OEDEMA [None]
  - SWOLLEN TONGUE [None]
  - ABASIA [None]
  - DYSSTASIA [None]
  - ASTHENIA [None]
  - MENTAL STATUS CHANGES [None]
  - BALANCE DISORDER [None]
  - PYREXIA [None]
  - DIZZINESS [None]
  - CONFUSIONAL STATE [None]
  - TREMOR [None]
  - AGITATION [None]
  - HALLUCINATION [None]
  - FATIGUE [None]
